FAERS Safety Report 17275560 (Version 1)
Quarter: 2020Q1

REPORT INFORMATION
  Report Type: Spontaneous
  Country: FR (occurrence: FR)
  Receive Date: 20200116
  Receipt Date: 20200116
  Transmission Date: 20200409
  Serious: Yes (Hospitalization, Other)
  Sender: FDA-Public Use
  Company Number: ALC2020FR000442

PATIENT

DRUGS (1)
  1. SKIACOL [Suspect]
     Active Substance: CYCLOPENTOLATE
     Indication: FUNDOSCOPY
     Route: 047
     Dates: start: 20160902, end: 20160902

REACTIONS (7)
  - Paralysis [Recovered/Resolved]
  - Aphasia [Recovered/Resolved]
  - Dyskinesia [Recovered/Resolved]
  - Muscle tightness [Recovered/Resolved]
  - Limb discomfort [Recovered/Resolved]
  - Mydriasis [Recovered/Resolved]
  - Loss of consciousness [Recovered/Resolved]

NARRATIVE: CASE EVENT DATE: 20160902
